FAERS Safety Report 17842433 (Version 1)
Quarter: 2020Q2

REPORT INFORMATION
  Report Type: Spontaneous
  Country: TR (occurrence: TR)
  Receive Date: 20200529
  Receipt Date: 20200529
  Transmission Date: 20200714
  Serious: Yes (Hospitalization, Other)
  Sender: FDA-Public Use
  Company Number: NVSC2020TR147553

PATIENT
  Age: 17 Year
  Sex: Male

DRUGS (3)
  1. ACETAMINOPHEN (PARACETAMOL) [Suspect]
     Active Substance: ACETAMINOPHEN
     Indication: HEADACHE
  2. ACETAMINOPHEN (PARACETAMOL) [Suspect]
     Active Substance: ACETAMINOPHEN
     Indication: PYREXIA
     Dosage: UNK
     Route: 065
  3. ACETAMINOPHEN (PARACETAMOL) [Suspect]
     Active Substance: ACETAMINOPHEN
     Indication: RHINORRHOEA

REACTIONS (4)
  - Speech disorder [Recovered/Resolved]
  - Depressed level of consciousness [Unknown]
  - Encephalopathy [Recovered/Resolved]
  - Muscular weakness [Recovered/Resolved]
